FAERS Safety Report 16569112 (Version 1)
Quarter: 2019Q3

REPORT INFORMATION
  Report Type: Spontaneous
  Country: GB (occurrence: GB)
  Receive Date: 20190714
  Receipt Date: 20190714
  Transmission Date: 20191004
  Serious: Yes (Hospitalization)
  Sender: FDA-Public Use
  Company Number: GB-DEXPHARM-20190457

PATIENT
  Age: 60 Year
  Sex: Male

DRUGS (11)
  1. DOCUSATE [Suspect]
     Active Substance: DOCUSATE
     Route: 048
  2. LANSOPRAZOLE. [Suspect]
     Active Substance: LANSOPRAZOLE
     Route: 048
  3. HYOSCINE HYDROBROMIDE [Suspect]
     Active Substance: SCOPOLAMINE HYDROBROMIDE
     Route: 048
  4. CLOZAPINE. [Suspect]
     Active Substance: CLOZAPINE
     Indication: SCHIZOPHRENIA
     Route: 048
  5. SERTRALINE [Suspect]
     Active Substance: SERTRALINE HYDROCHLORIDE
     Route: 048
  6. PREGABALIN. [Suspect]
     Active Substance: PREGABALIN
  7. METFORMIN [Suspect]
     Active Substance: METFORMIN HYDROCHLORIDE
     Route: 048
  8. DIAZEPAM. [Concomitant]
     Active Substance: DIAZEPAM
  9. GLICLAZIDE [Suspect]
     Active Substance: GLICLAZIDE
     Route: 048
  10. ATORVASTATIN [Suspect]
     Active Substance: ATORVASTATIN
     Route: 048
  11. OLANZAPINE. [Suspect]
     Active Substance: OLANZAPINE
     Route: 048

REACTIONS (1)
  - Pulmonary embolism [Recovering/Resolving]
